FAERS Safety Report 20627067 (Version 1)
Quarter: 2022Q1

REPORT INFORMATION
  Report Type: Spontaneous
  Country: US (occurrence: None)
  Receive Date: 20220322
  Receipt Date: 20220322
  Transmission Date: 20220423
  Serious: No
  Sender: FDA-Public Use
  Company Number: None

PATIENT
  Age: 42 Year
  Sex: Female
  Weight: 81 kg

DRUGS (2)
  1. VYEPTI [Suspect]
     Active Substance: EPTINEZUMAB-JJMR
     Indication: Migraine
     Route: 042
     Dates: start: 20220310, end: 20220310
  2. VYEPTI [Concomitant]
     Active Substance: EPTINEZUMAB-JJMR
     Dates: start: 20220310, end: 20220310

REACTIONS (5)
  - Sneezing [None]
  - Upper-airway cough syndrome [None]
  - Nasal congestion [None]
  - Blood pressure increased [None]
  - Infusion related reaction [None]

NARRATIVE: CASE EVENT DATE: 20220310
